FAERS Safety Report 5165927-4 (Version None)
Quarter: 2006Q4

REPORT INFORMATION
  Report Type: 
  Country: None (occurrence: None)
  Receive Date: 20061206
  Receipt Date: 20061115
  Transmission Date: 20070319
  Serious: Yes (Hospitalization)
  Sender: FDA-Public Use
  Company Number: FR-BOEHRINGER INGELHEIM PHARMACEUTICALS, INC.-2006-BP-13651YA

PATIENT
  Age: 65 Year
  Sex: Male

DRUGS (1)
  1. OMIX L.P. [Suspect]
     Indication: PROSTATIC ADENOMA
     Route: 048
     Dates: start: 20041228, end: 20050107

REACTIONS (1)
  - CHOLANGIOLITIS [None]
